FAERS Safety Report 10309423 (Version 2)
Quarter: 2015Q3

REPORT INFORMATION
  Report Type: Report from Study
  Country: GB (occurrence: GB)
  Receive Date: 20140716
  Receipt Date: 20150711
  Transmission Date: 20151125
  Serious: Yes (Death, Hospitalization)
  Sender: FDA-Public Use
  Company Number: GB-JNJFOC-20140709181

PATIENT
  Age: 40 Year
  Sex: Male

DRUGS (40)
  1. AMLODIPINE [Suspect]
     Active Substance: AMLODIPINE BESYLATE
     Indication: HYPERTENSION
     Route: 048
     Dates: start: 20120705
  2. RAMIPRIL. [Suspect]
     Active Substance: RAMIPRIL
     Indication: HYPERTENSION
     Route: 048
     Dates: start: 20140113
  3. SERTRALINE [Suspect]
     Active Substance: SERTRALINE HYDROCHLORIDE
     Indication: DEPRESSION
     Route: 048
     Dates: start: 20121210, end: 20140101
  4. LIORESAL [Suspect]
     Active Substance: BACLOFEN
     Indication: CEREBROVASCULAR ACCIDENT
     Route: 037
     Dates: start: 20140128, end: 20140130
  5. LIORESAL [Suspect]
     Active Substance: BACLOFEN
     Indication: CEREBROVASCULAR ACCIDENT
     Route: 037
     Dates: start: 20140204, end: 20140206
  6. LIORESAL [Suspect]
     Active Substance: BACLOFEN
     Indication: CEREBROVASCULAR ACCIDENT
     Route: 037
     Dates: start: 20140122, end: 20140122
  7. LIORESAL [Suspect]
     Active Substance: BACLOFEN
     Indication: CEREBROVASCULAR ACCIDENT
     Route: 037
     Dates: start: 20140311
  8. LIORESAL [Suspect]
     Active Substance: BACLOFEN
     Indication: CEREBROVASCULAR ACCIDENT
     Dosage: INCREASED TITRATION BY 20%
     Route: 037
     Dates: start: 20140120, end: 20140120
  9. LIORESAL [Suspect]
     Active Substance: BACLOFEN
     Indication: CEREBROVASCULAR ACCIDENT
     Route: 037
     Dates: start: 20140226, end: 20140310
  10. LIORESAL [Suspect]
     Active Substance: BACLOFEN
     Indication: MUSCLE SPASTICITY
     Route: 037
     Dates: start: 20140117, end: 20140119
  11. LIORESAL [Suspect]
     Active Substance: BACLOFEN
     Indication: MUSCLE SPASTICITY
     Dosage: 500 MCG/ML/CONCENTRATION 10 MG/20ML
     Route: 037
     Dates: start: 20140123, end: 20140127
  12. LIORESAL [Suspect]
     Active Substance: BACLOFEN
     Indication: MUSCLE SPASTICITY
     Route: 037
     Dates: start: 20140207, end: 20140224
  13. LIORESAL [Suspect]
     Active Substance: BACLOFEN
     Indication: CEREBROVASCULAR ACCIDENT
     Dosage: 500 MCG/ML/CONCENTRATION 10 MG/20ML
     Route: 037
     Dates: start: 20140123, end: 20140127
  14. LIORESAL [Suspect]
     Active Substance: BACLOFEN
     Indication: MUSCLE SPASTICITY
     Dosage: INCREASED TITRATION BY 20%
     Route: 037
     Dates: start: 20140120, end: 20140120
  15. LIORESAL [Suspect]
     Active Substance: BACLOFEN
     Indication: MUSCLE SPASTICITY
     Route: 037
     Dates: start: 20140121, end: 20140121
  16. BACLOFEN. [Suspect]
     Active Substance: BACLOFEN
     Indication: MUSCLE SPASTICITY
     Route: 048
     Dates: start: 20120801, end: 20140112
  17. PARACETAMOL [Suspect]
     Active Substance: ACETAMINOPHEN
     Indication: ANALGESIC THERAPY
     Dosage: AS REQUIRED
     Route: 065
     Dates: start: 20121112
  18. ZOPICLONE [Suspect]
     Active Substance: ZOPICLONE
     Indication: INSOMNIA
     Route: 048
     Dates: start: 20130220
  19. LIORESAL [Suspect]
     Active Substance: BACLOFEN
     Indication: MUSCLE SPASTICITY
     Route: 037
     Dates: start: 20140122, end: 20140122
  20. LIORESAL [Suspect]
     Active Substance: BACLOFEN
     Indication: MUSCLE SPASTICITY
     Route: 037
     Dates: start: 20140204, end: 20140206
  21. LIORESAL [Suspect]
     Active Substance: BACLOFEN
     Indication: MUSCLE SPASTICITY
     Route: 037
     Dates: start: 20140226, end: 20140310
  22. BACLOFEN. [Suspect]
     Active Substance: BACLOFEN
     Indication: CEREBROVASCULAR ACCIDENT
     Route: 048
     Dates: start: 20120801, end: 20140120
  23. BACLOFEN. [Suspect]
     Active Substance: BACLOFEN
     Indication: MUSCLE SPASTICITY
     Route: 048
     Dates: start: 20120801, end: 20140120
  24. IBUPROFEN. [Suspect]
     Active Substance: IBUPROFEN
     Indication: ANALGESIC THERAPY
     Route: 048
     Dates: start: 20140109
  25. METOPROLOL [Suspect]
     Active Substance: METOPROLOL
     Indication: HYPERTENSION
     Route: 048
     Dates: start: 20120705
  26. LIORESAL [Suspect]
     Active Substance: BACLOFEN
     Indication: CEREBROVASCULAR ACCIDENT
     Route: 037
     Dates: start: 20140207, end: 20140224
  27. LIORESAL [Suspect]
     Active Substance: BACLOFEN
     Indication: CEREBROVASCULAR ACCIDENT
     Route: 037
     Dates: start: 20140121, end: 20140203
  28. LIORESAL [Suspect]
     Active Substance: BACLOFEN
     Indication: CEREBROVASCULAR ACCIDENT
     Route: 037
     Dates: start: 20140121, end: 20140121
  29. LIORESAL [Suspect]
     Active Substance: BACLOFEN
     Indication: MUSCLE SPASTICITY
     Route: 037
     Dates: start: 20140121, end: 20140203
  30. MIRTAZAPINE. [Suspect]
     Active Substance: MIRTAZAPINE
     Indication: PRODUCT USED FOR UNKNOWN INDICATION
     Route: 065
     Dates: start: 20140522
  31. IBUPROFEN. [Suspect]
     Active Substance: IBUPROFEN
     Route: 048
  32. LIORESAL [Suspect]
     Active Substance: BACLOFEN
     Indication: CEREBROVASCULAR ACCIDENT
     Route: 037
     Dates: start: 20140225, end: 20140225
  33. CO-DYDRAMOL [Suspect]
     Active Substance: ACETAMINOPHEN\DIHYDROCODEINE
     Indication: ANALGESIC THERAPY
     Route: 048
     Dates: start: 20140109
  34. BACLOFEN. [Suspect]
     Active Substance: BACLOFEN
     Indication: CEREBROVASCULAR ACCIDENT
     Route: 048
     Dates: start: 20120801, end: 20140112
  35. LIORESAL [Suspect]
     Active Substance: BACLOFEN
     Indication: MUSCLE SPASTICITY
     Route: 037
     Dates: start: 20140311
  36. LIORESAL [Suspect]
     Active Substance: BACLOFEN
     Indication: MUSCLE SPASTICITY
     Route: 037
     Dates: start: 20140225, end: 20140225
  37. SILDENAFIL. [Suspect]
     Active Substance: SILDENAFIL
     Indication: ERECTILE DYSFUNCTION
     Dosage: AS REQUIRED
     Route: 048
     Dates: start: 20130220
  38. VENLAFAXINE [Suspect]
     Active Substance: VENLAFAXINE HYDROCHLORIDE
     Indication: DEPRESSION
     Route: 048
     Dates: start: 20140226
  39. LIORESAL [Suspect]
     Active Substance: BACLOFEN
     Indication: CEREBROVASCULAR ACCIDENT
     Route: 037
     Dates: start: 20140117, end: 20140119
  40. LIORESAL [Suspect]
     Active Substance: BACLOFEN
     Indication: MUSCLE SPASTICITY
     Route: 037
     Dates: start: 20140128, end: 20140130

REACTIONS (31)
  - Stress [Recovered/Resolved]
  - Self injurious behaviour [Unknown]
  - Implant site extravasation [Unknown]
  - Sudden death [Fatal]
  - Depression [Recovered/Resolved]
  - Pulmonary oedema [Unknown]
  - Scratch [Unknown]
  - Onychomycosis [Unknown]
  - Purulent discharge [Recovered/Resolved]
  - Fall [Unknown]
  - Alcohol poisoning [Fatal]
  - Pulmonary congestion [Unknown]
  - Erectile dysfunction [Unknown]
  - Condition aggravated [Unknown]
  - Scar [Unknown]
  - Anxiety [Recovered/Resolved]
  - Neutrophil count increased [Unknown]
  - Mental disorder [Recovered/Resolved]
  - Pain [Unknown]
  - Cardiomegaly [Unknown]
  - Hepatic steatosis [Unknown]
  - Pain in extremity [Unknown]
  - Insomnia [Unknown]
  - Macrophages increased [Unknown]
  - Implant site infection [Unknown]
  - Conjunctival hyperaemia [Unknown]
  - Toxicity to various agents [Unknown]
  - Unevaluable event [Unknown]
  - Petechiae [Unknown]
  - Wound dehiscence [Unknown]
  - Blood ethanol increased [Unknown]

NARRATIVE: CASE EVENT DATE: 20140223
